FAERS Safety Report 15855633 (Version 3)
Quarter: 2020Q1

REPORT INFORMATION
  Report Type: Report from Study
  Country: US (occurrence: US)
  Receive Date: 20190122
  Receipt Date: 20200327
  Transmission Date: 20200409
  Serious: Yes (Hospitalization)
  Sender: FDA-Public Use
  Company Number: US-ACTELION-A-NJ2017-163836

PATIENT
  Age: 85 Year
  Sex: Female
  Weight: 43.99 kg

DRUGS (2)
  1. OPSUMIT [Suspect]
     Active Substance: MACITENTAN
     Indication: PULMONARY ARTERIAL HYPERTENSION
     Dosage: 10 MG, QD
     Route: 048
     Dates: start: 20170829
  2. ELIQUIS [Concomitant]
     Active Substance: APIXABAN

REACTIONS (8)
  - Hip fracture [Unknown]
  - Therapy non-responder [Unknown]
  - Fall [Unknown]
  - Unevaluable event [Unknown]
  - Fluid retention [Unknown]
  - Bone density decreased [Unknown]
  - Peripheral swelling [Unknown]
  - Concomitant disease aggravated [Unknown]

NARRATIVE: CASE EVENT DATE: 201712
